FAERS Safety Report 9594303 (Version 1)
Quarter: 2013Q3

REPORT INFORMATION
  Report Type: Spontaneous
  Country: US (occurrence: None)
  Receive Date: 20130923
  Receipt Date: 20130923
  Transmission Date: 20140515
  Serious: Yes (Death)
  Sender: FDA-Public Use
  Company Number: 2013STPI000292

PATIENT
  Age: 66 Year
  Sex: Female

DRUGS (1)
  1. MATULANE (PROCARBAZINE HYDROCHLORIDE) CAPSULE, 50MG [Suspect]
     Route: 048
     Dates: start: 2013, end: 2013

REACTIONS (1)
  - Brain neoplasm malignant [None]
